FAERS Safety Report 23606590 (Version 8)
Quarter: 2025Q2

REPORT INFORMATION
  Report Type: Report from Study
  Country: US (occurrence: US)
  Receive Date: 20240307
  Receipt Date: 20250626
  Transmission Date: 20250717
  Serious: Yes (Hospitalization, Other)
  Sender: TAKEDA
  Company Number: US-TAKEDA-2022TUS004944

PATIENT
  Age: 63 Year
  Sex: Female
  Weight: 73 kg

DRUGS (50)
  1. HUMAN IMMUNOGLOBULIN G [Suspect]
     Active Substance: HUMAN IMMUNOGLOBULIN G
     Indication: Immunodeficiency common variable
     Dosage: 20 GRAM, Q4WEEKS
     Dates: start: 20190710
  2. HUMAN IMMUNOGLOBULIN G [Suspect]
     Active Substance: HUMAN IMMUNOGLOBULIN G
     Dosage: 20 GRAM, Q4WEEKS
  3. ESOMEPRAZOLE MAGNESIUM [Concomitant]
     Active Substance: ESOMEPRAZOLE MAGNESIUM
  4. ASPIRIN [Concomitant]
     Active Substance: ASPIRIN
  5. ZOLOFT [Concomitant]
     Active Substance: SERTRALINE HYDROCHLORIDE
  6. CYANOCOBALAMIN [Concomitant]
     Active Substance: CYANOCOBALAMIN
  7. ACYCLOVIR [Concomitant]
     Active Substance: ACYCLOVIR
  8. RANITIDINE [Concomitant]
     Active Substance: RANITIDINE
  9. FLUTICASONE PROPIONATE\SALMETEROL XINAFOATE [Concomitant]
     Active Substance: FLUTICASONE PROPIONATE\SALMETEROL XINAFOATE
  10. FLUTICASONE PROPIONATE [Concomitant]
     Active Substance: FLUTICASONE PROPIONATE
  11. METHYLPHENIDATE [Concomitant]
     Active Substance: METHYLPHENIDATE
  12. LITHIUM CARBONATE [Concomitant]
     Active Substance: LITHIUM CARBONATE
  13. LEVOTHYROXINE [Concomitant]
     Active Substance: LEVOTHYROXINE
  14. DICLOFENAC SODIUM [Concomitant]
     Active Substance: DICLOFENAC SODIUM
  15. LORAZEPAM [Concomitant]
     Active Substance: LORAZEPAM
  16. VENTOLIN HFA [Concomitant]
     Active Substance: ALBUTEROL SULFATE
  17. PROAIR HFA [Concomitant]
     Active Substance: ALBUTEROL SULFATE
  18. ZOFRAN [Concomitant]
     Active Substance: ONDANSETRON HYDROCHLORIDE
  19. SODIUM CHLORIDE [Concomitant]
     Active Substance: SODIUM CHLORIDE
  20. SODIUM CHLORIDE [Concomitant]
     Active Substance: SODIUM CHLORIDE
  21. DEXAMETHASONE [Concomitant]
     Active Substance: DEXAMETHASONE
  22. BENZONATATE [Concomitant]
     Active Substance: BENZONATATE
  23. DIPHENHYDRAMINE [Concomitant]
     Active Substance: DIPHENHYDRAMINE
  24. METOPROLOL SUCCINATE [Concomitant]
     Active Substance: METOPROLOL SUCCINATE
  25. ALBUTEROL SULFATE [Concomitant]
     Active Substance: ALBUTEROL SULFATE
  26. EPINEPHRINE [Concomitant]
     Active Substance: EPINEPHRINE
  27. SODIUM CHLORIDE [Concomitant]
     Active Substance: SODIUM CHLORIDE
  28. EZETIMIBE [Concomitant]
     Active Substance: EZETIMIBE
  29. ATORVASTATIN CALCIUM [Concomitant]
     Active Substance: ATORVASTATIN CALCIUM
  30. RITALIN [Concomitant]
     Active Substance: METHYLPHENIDATE HYDROCHLORIDE
  31. ACETAMINOPHEN [Concomitant]
     Active Substance: ACETAMINOPHEN
  32. HYDROXYZINE HYDROCHLORIDE [Concomitant]
     Active Substance: HYDROXYZINE HYDROCHLORIDE
  33. KETOROLAC TROMETHAMINE [Concomitant]
     Active Substance: KETOROLAC TROMETHAMINE
  34. SODIUM CHLORIDE [Concomitant]
     Active Substance: SODIUM CHLORIDE
  35. HYDROMET [Concomitant]
     Active Substance: HOMATROPINE METHYLBROMIDE\HYDROCODONE BITARTRATE
  36. LIDOCAINE [Concomitant]
     Active Substance: LIDOCAINE
  37. QVAR [Concomitant]
     Active Substance: BECLOMETHASONE DIPROPIONATE
  38. CVS coenzyme q 10 [Concomitant]
  39. DOXYCYCLINE HYCLATE [Concomitant]
     Active Substance: DOXYCYCLINE HYCLATE
  40. PREDNISONE [Concomitant]
     Active Substance: PREDNISONE
  41. MORPHINE SULFATE [Concomitant]
     Active Substance: MORPHINE SULFATE
  42. SALMETEROL [Concomitant]
     Active Substance: SALMETEROL
  43. NEILMED SINUS RINSE [Concomitant]
     Active Substance: SODIUM BICARBONATE\SODIUM CHLORIDE
  44. VERAPAMIL [Concomitant]
     Active Substance: VERAPAMIL HYDROCHLORIDE
  45. NITROGLYCERIN [Concomitant]
     Active Substance: NITROGLYCERIN
  46. SERTRALINE HYDROCHLORIDE [Concomitant]
     Active Substance: SERTRALINE HYDROCHLORIDE
  47. DILTIAZEM [Concomitant]
     Active Substance: DILTIAZEM
  48. DIPHENHYDRAMINE HYDROCHLORIDE [Concomitant]
     Active Substance: DIPHENHYDRAMINE HYDROCHLORIDE
  49. HYDROCORTISONE [Concomitant]
     Active Substance: HYDROCORTISONE
  50. TRAMADOL HCL [Concomitant]
     Active Substance: TRAMADOL HYDROCHLORIDE

REACTIONS (20)
  - Prinzmetal angina [Unknown]
  - Muscle rupture [Unknown]
  - COVID-19 [Unknown]
  - Stress fracture [Unknown]
  - Gastroenteritis viral [Unknown]
  - Joint injury [Unknown]
  - Application site bruise [Unknown]
  - Fall [Unknown]
  - Musculoskeletal chest pain [Unknown]
  - Abdominal discomfort [Unknown]
  - Oropharyngeal pain [Recovering/Resolving]
  - Pain [Recovering/Resolving]
  - Cough [Unknown]
  - Arthralgia [Unknown]
  - Vomiting [Recovered/Resolved]
  - Diarrhoea [Recovered/Resolved]
  - Chills [Recovering/Resolving]
  - Nausea [Recovered/Resolved]
  - Headache [Unknown]
  - Fatigue [Recovering/Resolving]

NARRATIVE: CASE EVENT DATE: 20240216
